FAERS Safety Report 9609311 (Version 2)
Quarter: 2014Q1

REPORT INFORMATION
  Report Type: Report from Study
  Country: CA (occurrence: CA)
  Receive Date: 20131009
  Receipt Date: 20140102
  Transmission Date: 20141002
  Serious: Yes (Hospitalization)
  Sender: FDA-Public Use
  Company Number: CA-ABBVIE-13P-028-1154804-00

PATIENT
  Age: 78 Year
  Sex: Male

DRUGS (4)
  1. HUMIRA [Suspect]
     Indication: PSORIASIS
     Route: 058
     Dates: start: 20120429
  2. SEROQUEL [Concomitant]
     Indication: BIPOLAR I DISORDER
     Route: 048
     Dates: start: 2008
  3. ATORVASTATIN [Concomitant]
     Indication: HYPERCHOLESTEROLAEMIA
     Route: 048
     Dates: start: 20130303
  4. TEVA-TELISARTAN [Concomitant]
     Indication: HYPERTENSION
     Dosage: 12.5/80MG
     Route: 048
     Dates: start: 20130303

REACTIONS (1)
  - Unevaluable event [Recovered/Resolved]
